FAERS Safety Report 14349805 (Version 3)
Quarter: 2019Q2

REPORT INFORMATION
  Report Type: Report from Study
  Country: MX (occurrence: MX)
  Receive Date: 20180104
  Receipt Date: 20190528
  Transmission Date: 20190711
  Serious: Yes (Hospitalization)
  Sender: FDA-Public Use
  Company Number: PHHY2018MX000600

PATIENT
  Sex: Male
  Weight: 80 kg

DRUGS (2)
  1. AFINITOR [Suspect]
     Active Substance: EVEROLIMUS
     Indication: RENAL CANCER
     Dosage: 10 MG, QD
     Route: 048
     Dates: start: 20171006, end: 20171223
  2. AFINITOR [Suspect]
     Active Substance: EVEROLIMUS
     Indication: METASTASES TO LUNG
     Dosage: 10 MG, QOD
     Route: 048

REACTIONS (7)
  - Inappropriate schedule of product administration [Unknown]
  - Fatigue [Unknown]
  - Asthenia [Recovering/Resolving]
  - Drug ineffective [Unknown]
  - Decreased immune responsiveness [Recovering/Resolving]
  - Haemoglobin decreased [Unknown]
  - Pulmonary mass [Unknown]
